FAERS Safety Report 6532693-7 (Version None)
Quarter: 2010Q1

REPORT INFORMATION
  Report Type: 
  Country: None (occurrence: None)
  Receive Date: 20100111
  Receipt Date: 20100104
  Transmission Date: 20100710
  Serious: Yes (Disabling)
  Sender: FDA-Public Use
  Company Number: US-BAYER-201010226NA

PATIENT
  Age: 27 Year
  Sex: Female

DRUGS (1)
  1. MIRENA [Suspect]
     Indication: CONTRACEPTION
     Route: 015
     Dates: start: 20090501

REACTIONS (5)
  - ABDOMINAL PAIN [None]
  - IRRITABILITY [None]
  - MEDICAL DEVICE COMPLICATION [None]
  - VAGINAL DISCHARGE [None]
  - VAGINAL HAEMORRHAGE [None]
